FAERS Safety Report 9690492 (Version 1)
Quarter: 2013Q4

REPORT INFORMATION
  Report Type: Spontaneous
  Country: US (occurrence: None)
  Receive Date: 20131114
  Receipt Date: 20131114
  Transmission Date: 20140711
  Serious: Yes (Disabling, Other)
  Sender: FDA-Public Use
  Company Number: None

PATIENT
  Age: 96 Year
  Sex: Female
  Weight: 55.34 kg

DRUGS (8)
  1. ALPHAGAN [Suspect]
     Indication: GLAUCOMA
     Dosage: 0.1%?2DROPS?TWICE DAILY?DROPS INTO EYES
     Dates: start: 20130719, end: 20130814
  2. NAPROXEN [Concomitant]
  3. HYDROCHLOROTHIAZIDE [Concomitant]
  4. LATANOPROST [Concomitant]
  5. ASPIRIN [Concomitant]
  6. CENTRUM SILVER [Concomitant]
  7. ALIVECALCIUM [Concomitant]
  8. RESCUBA [Concomitant]

REACTIONS (1)
  - Vision blurred [None]
